FAERS Safety Report 7770816-2 (Version None)
Quarter: 2011Q3

REPORT INFORMATION
  Report Type: 
  Country: None (occurrence: None)
  Receive Date: 20110922
  Receipt Date: 20110822
  Transmission Date: 20111222
  Serious: No
  Sender: FDA-Public Use
  Company Number: US-ASTRAZENECA-2011SE28618

PATIENT
  Age: 55 Year
  Sex: Female

DRUGS (8)
  1. SEROQUEL [Suspect]
     Indication: BIPOLAR DISORDER
     Route: 048
  2. CELEXA [Concomitant]
  3. MIRTAUPINE [Concomitant]
  4. KLONOPIN [Concomitant]
  5. SEROQUEL [Suspect]
     Route: 048
  6. LORAZEPAM [Concomitant]
  7. SEROQUEL [Suspect]
     Indication: DEPRESSION
     Route: 048
  8. SEROQUEL [Suspect]
     Route: 048

REACTIONS (8)
  - OEDEMA PERIPHERAL [None]
  - BLOOD GLUCOSE INCREASED [None]
  - ACTIVITIES OF DAILY LIVING IMPAIRED [None]
  - INTENTIONAL DRUG MISUSE [None]
  - PANIC ATTACK [None]
  - INSOMNIA [None]
  - EMOTIONAL DISTRESS [None]
  - DRUG DOSE OMISSION [None]
